FAERS Safety Report 16238357 (Version 1)
Quarter: 2019Q2

REPORT INFORMATION
  Report Type: Spontaneous
  Country: DK (occurrence: DK)
  Receive Date: 20190425
  Receipt Date: 20190425
  Transmission Date: 20190711
  Serious: Yes (Hospitalization)
  Sender: FDA-Public Use
  Company Number: PHHY2019DK093921

PATIENT
  Age: 66 Year
  Sex: Female

DRUGS (10)
  1. PRAMIPEXOLE. [Suspect]
     Active Substance: PRAMIPEXOLE
     Indication: PARKINSON^S DISEASE
     Dosage: 2 DF, QD (DOSIS: 0,78 MG MORGEN OG 0,52 MG EFTERMIDDAG.STYRKE: 0,26 MG.) (2 UG/LITRE)
     Route: 048
  2. SINEMET [Concomitant]
     Active Substance: CARBIDOPA\LEVODOPA
     Indication: PARKINSON^S DISEASE
     Dosage: 6 DF, QD (STYRKE: 100 + 25 MG.) (6 UG/LITRE)
     Route: 048
     Dates: start: 20170307
  3. CIPRAMIL [CITALOPRAM HYDROCHLORIDE] [Concomitant]
     Active Substance: CITALOPRAM HYDROCHLORIDE
     Indication: ANXIETY
     Dosage: 10 MG, QD (STYRKE: 10 MG.)
     Route: 048
     Dates: start: 20170608
  4. MOVICOL [Concomitant]
     Active Substance: POLYETHYLENE GLYCOL 3350\POTASSIUM CHLORIDE\SODIUM BICARBONATE\SODIUM CHLORIDE
     Indication: CONSTIPATION
     Dosage: 2 DF, QD (STYRKE: UKENDT.) (2 UG/LITRE)
     Route: 048
     Dates: start: 20180906
  5. KALEORID [Concomitant]
     Active Substance: POTASSIUM CHLORIDE
     Indication: MINERAL SUPPLEMENTATION
     Dosage: 750 MG, QD (STYRKE: 750 MG.)
     Route: 048
     Dates: start: 20180802
  6. OXAPAX [Concomitant]
     Active Substance: OXAZEPAM
     Indication: SEDATIVE THERAPY
     Dosage: 7.5 MG, (STYRKE: 15 MG.)
     Route: 048
     Dates: start: 20180220
  7. IBUMETIN [Concomitant]
     Active Substance: IBUPROFEN
     Indication: MYALGIA
     Dosage: 400 MG, (STYRKE: 400 MG. DOSIS: 1 TABLET PN., H?JST 3 GANGE DAGLIGT.)
     Route: 048
     Dates: start: 20160107
  8. FURIX (FUROSEMIDE) [Concomitant]
     Active Substance: FUROSEMIDE
     Indication: DIURETIC THERAPY
     Dosage: 40 MG, QD (STYRKE: 40 MG.)
     Route: 048
     Dates: start: 20180802
  9. PAMOL [Concomitant]
     Active Substance: ACETAMINOPHEN
     Indication: PAIN
     Dosage: 1000 MG, (DOSIS: H?JST 4 GAGE DAGLIGT. STYRKE: 500 MG.)
     Route: 048
     Dates: start: 20150106
  10. DOLOL [Concomitant]
     Active Substance: TRAMADOL
     Indication: PAIN
     Dosage: 100 MG, QD (STYRKE: 50 MG. DOSIS: 1-2 KAPSLER, 2 GANGE DAGLIGT.)
     Route: 048
     Dates: start: 20180417

REACTIONS (1)
  - Oedema peripheral [Not Recovered/Not Resolved]

NARRATIVE: CASE EVENT DATE: 201805
